FAERS Safety Report 24917190 (Version 1)
Quarter: 2025Q1

REPORT INFORMATION
  Report Type: Spontaneous
  Country: US (occurrence: None)
  Receive Date: 20250201
  Receipt Date: 20250201
  Transmission Date: 20250408
  Serious: Yes (Death)
  Sender: FDA-CTU
  Company Number: None

PATIENT
  Age: 58 Year
  Sex: Male

DRUGS (1)
  1. REZDIFFRA [Suspect]
     Active Substance: RESMETIROM
     Indication: Liver disorder
     Route: 048
     Dates: start: 20240701, end: 20241001

REACTIONS (1)
  - Jaundice [None]

NARRATIVE: CASE EVENT DATE: 20241001
